FAERS Safety Report 9552604 (Version 4)
Quarter: 2013Q4

REPORT INFORMATION
  Report Type: Report from Study
  Country: AU (occurrence: AU)
  Receive Date: 20130925
  Receipt Date: 20131023
  Transmission Date: 20140711
  Serious: Yes (Hospitalization)
  Sender: FDA-Public Use
  Company Number: AU-ROCHE-1277293

PATIENT
  Age: 74 Year
  Sex: Female
  Weight: 55 kg

DRUGS (8)
  1. BEVACIZUMAB [Suspect]
     Indication: COLON CANCER
     Route: 042
     Dates: start: 20130319, end: 20130917
  2. FLUOROURACIL [Suspect]
     Indication: COLON CANCER
     Dosage: LAST DOSE PRIOR TO SAE 4/SEP/2013
     Route: 040
     Dates: start: 20130319, end: 20130917
  3. FLUOROURACIL [Suspect]
     Route: 041
     Dates: start: 20130319, end: 20130917
  4. CALCIUM FOLINATE [Suspect]
     Indication: COLON CANCER
     Dosage: LAST DOSE PRIOR TO SAE  4/SEP/2013
     Route: 042
     Dates: start: 20130319, end: 20130917
  5. NIFEDIPINE [Concomitant]
  6. OMEPRAZOLE [Concomitant]
     Route: 065
     Dates: start: 20130402
  7. ONDANSETRON [Concomitant]
     Route: 065
     Dates: start: 20130406
  8. PARACETAMOL [Concomitant]
     Route: 065

REACTIONS (2)
  - Confusional state [Recovered/Resolved]
  - Pyrexia [Recovered/Resolved]
